FAERS Safety Report 14604761 (Version 1)
Quarter: 2018Q1

REPORT INFORMATION
  Report Type: Spontaneous
  Country: US (occurrence: US)
  Receive Date: 20180306
  Receipt Date: 20180306
  Transmission Date: 20180509
  Serious: Yes (Life-Threatening, Hospitalization)
  Sender: FDA-Public Use
  Company Number: None

PATIENT
  Age: 72 Year
  Sex: Male
  Weight: 100.74 kg

DRUGS (1)
  1. WARFARIN [Suspect]
     Active Substance: WARFARIN
     Indication: ATRIAL FIBRILLATION
     Dates: start: 20171205, end: 20171231

REACTIONS (9)
  - Haemoptysis [None]
  - Shock haemorrhagic [None]
  - Melaena [None]
  - Asthenia [None]
  - Haemorrhage [None]
  - Gastric haemorrhage [None]
  - Haemoglobin decreased [None]
  - Anticoagulation drug level above therapeutic [None]
  - Gastrointestinal haemorrhage [None]

NARRATIVE: CASE EVENT DATE: 20171231
